FAERS Safety Report 9502105 (Version 2)
Quarter: 2013Q4

REPORT INFORMATION
  Report Type: Spontaneous
  Country: JP (occurrence: JP)
  Receive Date: 20130905
  Receipt Date: 20131008
  Transmission Date: 20140711
  Serious: Yes (Other)
  Sender: FDA-Public Use
  Company Number: PHHY2013JP095350

PATIENT
  Age: 84 Year
  Sex: Male

DRUGS (5)
  1. CEFTRIAXONE SODIUM SANDOZ [Suspect]
     Indication: PNEUMONIA
     Dosage: 2 G, DAILY
     Route: 042
     Dates: start: 20130818, end: 20130824
  2. ZITHROMAC [Concomitant]
  3. VANCOMYCIN HYDROCHLORIDE [Concomitant]
  4. ZOSYN [Concomitant]
  5. LANSOPRAZOLE [Concomitant]

REACTIONS (1)
  - Altered state of consciousness [Recovering/Resolving]
